FAERS Safety Report 4297251-6 (Version None)
Quarter: 2004Q1

REPORT INFORMATION
  Report Type: 
  Country: None (occurrence: None)
  Receive Date: 20040213
  Receipt Date: 20040119
  Transmission Date: 20041129
  Serious: Yes (Hospitalization)
  Sender: FDA-Public Use
  Company Number: ATO-04-0067

PATIENT
  Age: 68 Year
  Sex: Male
  Weight: 50 kg

DRUGS (1)
  1. TRISENOX [Suspect]
     Indication: MYELODYSPLASTIC SYNDROME
     Dosage: (0.3 MG/KG, 5 DOSE LOAD:2X/WK), IVI
     Route: 042
     Dates: start: 20031219, end: 20031219

REACTIONS (1)
  - PNEUMONIA STAPHYLOCOCCAL [None]
